FAERS Safety Report 7398943-2 (Version None)
Quarter: 2011Q2

REPORT INFORMATION
  Report Type: 
  Country: None (occurrence: None)
  Receive Date: 20110407
  Receipt Date: 20110405
  Transmission Date: 20111010
  Serious: Yes (Other)
  Sender: FDA-Public Use
  Company Number: US-PFIZER INC-2011022784

PATIENT
  Sex: Female

DRUGS (1)
  1. TIKOSYN [Suspect]
     Dosage: 500 UG, UNK

REACTIONS (5)
  - ATRIAL FIBRILLATION [None]
  - EMOTIONAL DISTRESS [None]
  - INSOMNIA [None]
  - DIZZINESS [None]
  - HEART RATE INCREASED [None]
